FAERS Safety Report 5054304-2 (Version None)
Quarter: 2006Q3

REPORT INFORMATION
  Report Type: 
  Country: None (occurrence: None)
  Receive Date: 20060713
  Receipt Date: 20060628
  Transmission Date: 20061208
  Serious: Yes (Other)
  Sender: FDA-Public Use
  Company Number: PHBS2006TR09737

PATIENT
  Age: 26 Year
  Sex: Male

DRUGS (4)
  1. CYCLOSPORINE [Suspect]
     Indication: RENAL TRANSPLANT
     Dosage: 200 MG/D
  2. AZATHIOPRINE [Suspect]
     Indication: RENAL TRANSPLANT
     Dosage: 50 MG/D
  3. METHYLPREDNISOLONE [Suspect]
     Indication: RENAL TRANSPLANT
     Dosage: 6 MG/D
  4. RAPAMYCIN(SIROLIMUS) [Suspect]
     Indication: RENAL TRANSPLANT

REACTIONS (8)
  - BLOOD CREATININE INCREASED [None]
  - GINGIVAL DISORDER [None]
  - HAEMOGLOBIN DECREASED [None]
  - LYMPHOPROLIFERATIVE DISORDER [None]
  - MALIGNANT TUMOUR EXCISION [None]
  - MASS [None]
  - PLASMACYTOMA [None]
  - RED BLOOD CELL SEDIMENTATION RATE INCREASED [None]
